FAERS Safety Report 7181385-2 (Version None)
Quarter: 2010Q4

REPORT INFORMATION
  Report Type: 
  Country: None (occurrence: None)
  Receive Date: 20101221
  Receipt Date: 20100422
  Transmission Date: 20110411
  Serious: No
  Sender: FDA-Public Use
  Company Number: US-AMGEN-TCS408076

PATIENT

DRUGS (2)
  1. ENBREL [Suspect]
     Indication: PSORIATIC ARTHROPATHY
     Dosage: 50 MG, 2 TIMES/WK
     Route: 058
     Dates: start: 20100101
  2. ENBREL [Suspect]
     Indication: PSORIASIS

REACTIONS (10)
  - ASTHENIA [None]
  - AURICULAR SWELLING [None]
  - BONE PAIN [None]
  - DYSKINESIA [None]
  - DYSPNOEA [None]
  - HEADACHE [None]
  - INNER EAR DISORDER [None]
  - IRRITABILITY [None]
  - MYALGIA [None]
  - OEDEMA PERIPHERAL [None]
